FAERS Safety Report 8354508-7 (Version None)
Quarter: 2012Q2

REPORT INFORMATION
  Report Type: 
  Country: None (occurrence: None)
  Receive Date: 20120511
  Receipt Date: 20120426
  Transmission Date: 20120825
  Serious: Yes (Other)
  Sender: FDA-Public Use
  Company Number: US-ENDO PHARMACEUTICALS INC.-PRED20120022

PATIENT
  Sex: Female
  Weight: 59.474 kg

DRUGS (15)
  1. METAMUCIL-2 [Concomitant]
     Indication: PRODUCT USED FOR UNKNOWN INDICATION
     Dosage: UNKNOWN
     Route: 048
  2. PREDNISONE TAB [Suspect]
     Route: 048
     Dates: start: 20120416
  3. PREDNISONE TAB [Suspect]
     Route: 048
     Dates: start: 20110101
  4. PROPRANOLOL [Concomitant]
     Indication: PRODUCT USED FOR UNKNOWN INDICATION
     Route: 048
  5. PREDNISONE TAB [Suspect]
     Route: 048
     Dates: start: 20110101
  6. EXTRA STRENGTH TYLENOL [Concomitant]
     Indication: PRODUCT USED FOR UNKNOWN INDICATION
     Route: 048
  7. PEPTO BISMOL MAX STRENGTH [Concomitant]
     Indication: ABDOMINAL DISCOMFORT
     Dosage: UNKNOWN
     Route: 048
  8. AMLODIPINE BESYLATE [Concomitant]
     Indication: PRODUCT USED FOR UNKNOWN INDICATION
     Route: 048
  9. KLOR-CON [Concomitant]
     Indication: PRODUCT USED FOR UNKNOWN INDICATION
     Route: 048
     Dates: start: 20120206
  10. CALCIUM W/VITAMIN D [Concomitant]
     Indication: PRODUCT USED FOR UNKNOWN INDICATION
     Dosage: UNKNOWN
     Route: 048
  11. PREDNISONE TAB [Suspect]
     Indication: TEMPORAL ARTERITIS
     Dosage: VARYING
     Route: 048
     Dates: start: 20100101
  12. PREDNISONE TAB [Suspect]
     Route: 048
     Dates: start: 20120201, end: 20120401
  13. EFFEXOR XR [Concomitant]
     Indication: PRODUCT USED FOR UNKNOWN INDICATION
     Route: 048
  14. ZANTAC [Concomitant]
     Indication: FLATULENCE
     Dosage: UNKNOWN
     Route: 048
  15. XANAX [Concomitant]
     Indication: PRODUCT USED FOR UNKNOWN INDICATION
     Route: 048

REACTIONS (12)
  - INSOMNIA [None]
  - ASTHENIA [None]
  - DEPRESSIVE SYMPTOM [None]
  - NAIL AVULSION [None]
  - ABDOMINAL DISCOMFORT [None]
  - ANGER [None]
  - ANXIETY [None]
  - PERSONALITY CHANGE [None]
  - GENERAL PHYSICAL HEALTH DETERIORATION [None]
  - MENTAL IMPAIRMENT [None]
  - BLINDNESS UNILATERAL [None]
  - ALOPECIA [None]
